FAERS Safety Report 8925894 (Version 1)
Quarter: 2012Q4

REPORT INFORMATION
  Report Type: 
  Country: US (occurrence: US)
  Receive Date: 20121126
  Receipt Date: 20121126
  Transmission Date: 20130627
  Serious: Yes (Hospitalization, Other)
  Sender: FDA-Public Use
  Company Number: US-009507513-2010SP055017

PATIENT

DRUGS (1)
  1. NUVARING [Suspect]
     Indication: PRODUCT USED FOR UNKNOWN INDICATION
     Dates: start: 200907, end: 200912

REACTIONS (9)
  - Pulmonary embolism [Unknown]
  - Pulmonary infarction [Unknown]
  - Deep vein thrombosis [Unknown]
  - Mental disorder [Unknown]
  - Cognitive disorder [Unknown]
  - Emotional disorder [Unknown]
  - Sciatica [Unknown]
  - Depression [Unknown]
  - Urinary tract infection [Unknown]
